FAERS Safety Report 7928020-0 (Version None)
Quarter: 2011Q4

REPORT INFORMATION
  Report Type: 
  Country: None (occurrence: None)
  Receive Date: 20111118
  Receipt Date: 20111116
  Transmission Date: 20120403
  Serious: Yes (Life-Threatening, Hospitalization, Other)
  Sender: FDA-Public Use
  Company Number: JP-ABBOTT-11P-087-0856264-00

PATIENT
  Sex: Male
  Weight: 62.7 kg

DRUGS (10)
  1. FOLIC ACID [Concomitant]
     Indication: PRODUCT USED FOR UNKNOWN INDICATION
     Route: 048
     Dates: end: 20110531
  2. FOLIC ACID [Concomitant]
     Dates: start: 20110531, end: 20110622
  3. HUMIRA [Suspect]
     Indication: RHEUMATOID ARTHRITIS
     Route: 058
     Dates: start: 20101101, end: 20110611
  4. METHOTREXATE [Suspect]
     Dosage: 10 MG/WEEK
     Route: 048
     Dates: start: 20110531, end: 20110622
  5. ETODOLAC [Concomitant]
     Indication: RHEUMATOID ARTHRITIS
     Route: 048
  6. MISOPROSTOL [Concomitant]
     Indication: PRODUCT USED FOR UNKNOWN INDICATION
     Route: 048
  7. LIMAPROST ALFADEX [Concomitant]
     Indication: PRODUCT USED FOR UNKNOWN INDICATION
     Route: 048
     Dates: end: 20110531
  8. PNEUMOCOCCAL VACCINE [Concomitant]
     Indication: PRODUCT USED FOR UNKNOWN INDICATION
     Route: 030
     Dates: start: 20101108, end: 20101108
  9. METHOTREXATE [Suspect]
     Indication: PRODUCT USED FOR UNKNOWN INDICATION
     Dosage: 8 MG/WEEK
     Route: 048
     Dates: end: 20110531
  10. DEXAMETHASONE [Concomitant]
     Indication: RHEUMATOID ARTHRITIS
     Route: 042
     Dates: end: 20101101

REACTIONS (4)
  - PNEUMOCYSTIS JIROVECI PNEUMONIA [None]
  - C-REACTIVE PROTEIN ABNORMAL [None]
  - CONDITION AGGRAVATED [None]
  - PYREXIA [None]
